FAERS Safety Report 8586122-2 (Version None)
Quarter: 2012Q3

REPORT INFORMATION
  Report Type: 
  Country: None (occurrence: None)
  Receive Date: 20120810
  Receipt Date: 20120731
  Transmission Date: 20120928
  Serious: Yes (Hospitalization, Other)
  Sender: FDA-Public Use
  Company Number: FR-PFIZER INC-2012177278

PATIENT
  Age: 70 Year
  Sex: Male
  Weight: 70 kg

DRUGS (14)
  1. TEMSIROLIMUS [Suspect]
     Indication: MANTLE CELL LYMPHOMA
     Dosage: 50 MG, CYCLIC
     Dates: start: 20120629, end: 20120706
  2. VALACYCLOVIR HYDROCHLORIDE [Concomitant]
     Dosage: 500 MG, 2X/DAY
  3. FOLIC ACID [Concomitant]
     Dosage: 1 DF, 1X/DAY
  4. FASTURTEC [Concomitant]
     Indication: PROPHYLAXIS
     Dosage: UNK
     Dates: start: 20120629
  5. PARACETAMOL [Concomitant]
     Indication: PREMEDICATION
  6. GRANOCYTE [Concomitant]
     Indication: PROPHYLAXIS
     Dosage: UNK
     Dates: start: 20120703, end: 20120708
  7. BACTRIM DS [Concomitant]
     Dosage: 3 DF, WEEKLY
     Route: 048
  8. RITUXIMAB [Concomitant]
     Dosage: 375 MG/M2, CYCLIC
     Route: 042
     Dates: start: 20120629
  9. CYTARABINE [Concomitant]
     Dosage: 2G/M2
     Route: 042
     Dates: start: 20120630, end: 20120701
  10. POLARAMINE [Concomitant]
     Indication: PREMEDICATION
  11. OMEPRAZOLE [Concomitant]
     Dosage: 1 DF, 1X/DAY
  12. INDAPAMIDE [Concomitant]
     Dosage: 1 DF, 1X/DAY
  13. DEXAMETHASONE [Concomitant]
     Dosage: 40 MG, 1X/DAY
     Route: 042
     Dates: start: 20120629, end: 20120702
  14. PERMIXON [Concomitant]
     Dosage: 1 DF, 1X/DAY

REACTIONS (3)
  - FEBRILE BONE MARROW APLASIA [None]
  - CONFUSIONAL STATE [None]
  - THROMBOCYTOPENIA [None]
